FAERS Safety Report 5407410-4 (Version None)
Quarter: 2007Q3

REPORT INFORMATION
  Report Type: 
  Country: None (occurrence: None)
  Receive Date: 20070807
  Receipt Date: 20070801
  Transmission Date: 20080115
  Serious: Yes (Death)
  Sender: FDA-Public Use
  Company Number: DK-ELI_LILLY_AND_COMPANY-DK200704005131

PATIENT
  Age: 70 Year
  Sex: Female
  Weight: 57 kg

DRUGS (6)
  1. GEMCITABINE HCL [Suspect]
     Indication: PANCREATIC CARCINOMA
     Dosage: 1230 MG, WEEKLY (1/W)
     Route: 042
     Dates: start: 20061208
  2. PINEX [Concomitant]
     Indication: PAIN
     Dosage: 1 G, 4/D
     Route: 048
  3. FLUCONAZOLE [Concomitant]
     Indication: FUNGAL INFECTION
     Dosage: 100 MG, DAILY (1/D)
     Route: 048
     Dates: start: 20070316, end: 20070326
  4. PREDNISOLONE [Concomitant]
     Indication: FATIGUE
     Dosage: 25 MG, DAILY (1/D)
  5. KALEORID [Concomitant]
     Indication: MINERAL DEFICIENCY
     Dosage: 750 MG, 2/D
     Route: 048
     Dates: start: 20070215
  6. CIPRALEX [Concomitant]
     Indication: DEPRESSION
     Dosage: 10 MG, DAILY (1/D)
     Route: 048

REACTIONS (10)
  - C-REACTIVE PROTEIN INCREASED [None]
  - CHILLS [None]
  - COUGH [None]
  - DYSPNOEA [None]
  - FATIGUE [None]
  - HYPERHIDROSIS [None]
  - LUNG INFILTRATION [None]
  - PNEUMONIA [None]
  - PYREXIA [None]
  - WHITE BLOOD CELL COUNT INCREASED [None]
